FAERS Safety Report 4792086-X (Version None)
Quarter: 2005Q4

REPORT INFORMATION
  Report Type: 
  Country: None (occurrence: None)
  Receive Date: 20051007
  Receipt Date: 20050927
  Transmission Date: 20060501
  Serious: Yes (Hospitalization)
  Sender: FDA-Public Use
  Company Number: FR-MERCK-0509USA03889

PATIENT
  Age: 64 Year
  Sex: Male

DRUGS (6)
  1. ZOCOR [Suspect]
     Route: 048
     Dates: start: 20050602, end: 20050614
  2. [THERAPY UNSPECIFIED] [Suspect]
     Route: 048
     Dates: start: 20050602, end: 20050614
  3. [THERAPY UNSPECIFIED] [Suspect]
     Route: 048
     Dates: start: 20050602
  4. DIAMICRON [Concomitant]
     Route: 048
     Dates: start: 20041215
  5. ENALAPRIL MALEATE [Concomitant]
     Route: 048
  6. [THERAPY UNSPECIFIED] [Concomitant]
     Route: 065
     Dates: start: 20050210

REACTIONS (13)
  - BILIARY CYST [None]
  - BLOOD CREATINE PHOSPHOKINASE INCREASED [None]
  - DYSPNOEA [None]
  - GENERAL PHYSICAL HEALTH DETERIORATION [None]
  - HEPATITIS FULMINANT [None]
  - ISCHAEMIC HEPATITIS [None]
  - JAUNDICE [None]
  - LUNG DISORDER [None]
  - MYOGLOBIN BLOOD INCREASED [None]
  - NECROSIS [None]
  - PLEURAL EFFUSION [None]
  - PYREXIA [None]
  - RHABDOMYOLYSIS [None]
